FAERS Safety Report 4356607-3 (Version None)
Quarter: 2004Q2

REPORT INFORMATION
  Report Type: 
  Country: None (occurrence: None)
  Receive Date: 20040512
  Receipt Date: 20040504
  Transmission Date: 20050107
  Serious: Yes (Other)
  Sender: FDA-Public Use
  Company Number: PHBS2004DE06071

PATIENT
  Age: 11 Year
  Sex: Male

DRUGS (2)
  1. CYCLOSPORINE [Suspect]
     Indication: TUBULOINTERSTITIAL NEPHRITIS
     Dosage: 70 MG/M2/D
  2. PREDNISONE [Concomitant]
     Indication: TUBULOINTERSTITIAL NEPHRITIS
     Dosage: 40 MG/M2/D

REACTIONS (4)
  - BENIGN INTRACRANIAL HYPERTENSION [None]
  - PAPILLOEDEMA [None]
  - RETINAL HAEMORRHAGE [None]
  - VISUAL EVOKED POTENTIALS ABNORMAL [None]
